FAERS Safety Report 9460819 (Version 2)
Quarter: 2013Q4

REPORT INFORMATION
  Report Type: Spontaneous
  Country: JP (occurrence: JP)
  Receive Date: 20130815
  Receipt Date: 20131004
  Transmission Date: 20140711
  Serious: Yes (Death, Other)
  Sender: FDA-Public Use
  Company Number: JP-009507513-1308JPN006380

PATIENT
  Sex: 0

DRUGS (2)
  1. TEMODAL INFUSION 100MG [Suspect]
     Dosage: 150 MG/M2, QD, SECOND CYCLE
     Route: 041
     Dates: end: 20130812
  2. TEMODAL INFUSION 100MG [Suspect]
     Dosage: 150 MG/M2, QD, FIRST CYCLE
     Route: 041

REACTIONS (2)
  - Circulatory collapse [Fatal]
  - Shock [Fatal]
